FAERS Safety Report 5026652-3 (Version None)
Quarter: 2006Q2

REPORT INFORMATION
  Report Type: 
  Country: None (occurrence: None)
  Receive Date: 20060426
  Receipt Date: 20060314
  Transmission Date: 20061013
  Serious: Yes (Other)
  Sender: FDA-Public Use
  Company Number: 2006036637

PATIENT
  Age: 44 Year
  Sex: Female

DRUGS (3)
  1. LYRICA [Suspect]
     Indication: FIBROMYALGIA
     Dosage: 150 MG (50 MG, 3 IN 1 D), UNKNOWN
     Dates: start: 20051001, end: 20051125
  2. DEPAKOTE [Concomitant]
  3. LEXAPRO [Concomitant]

REACTIONS (2)
  - HYPOMANIA [None]
  - MANIA [None]
